FAERS Safety Report 4741878-1 (Version None)
Quarter: 2005Q3

REPORT INFORMATION
  Report Type: 
  Country: None (occurrence: None)
  Receive Date: 20050728
  Receipt Date: 20041222
  Transmission Date: 20060218
  Serious: No
  Sender: FDA-Public Use
  Company Number: 04H-163-0284869-00

PATIENT
  Sex: Male

DRUGS (3)
  1. MIDAZOLAM HYDROCHLORIDE [Suspect]
     Indication: ANXIETY
     Dosage: SEE IMAGE
     Route: 040
     Dates: start: 20041130, end: 20041130
  2. MIDAZOLAM HYDROCHLORIDE [Suspect]
     Indication: ANXIETY
     Dosage: SEE IMAGE
     Route: 040
     Dates: start: 20041130, end: 20041130
  3. PROPOFOL [Concomitant]

REACTIONS (3)
  - MEDICATION ERROR [None]
  - OVERDOSE [None]
  - SEDATION [None]
